FAERS Safety Report 5199879-8 (Version None)
Quarter: 2007Q1

REPORT INFORMATION
  Report Type: 
  Country: None (occurrence: None)
  Receive Date: 20070102
  Receipt Date: 20070102
  Transmission Date: 20070707
  Serious: Yes (Disabling, Other)
  Sender: FDA-Public Use
  Company Number: None

PATIENT
  Age: 3 Year
  Sex: Male
  Weight: 16.7831 kg

DRUGS (2)
  1. TAMIFLU [Suspect]
     Indication: NASOPHARYNGITIS
     Dosage: 45 MG TWICE A DAY PO
     Route: 048
     Dates: start: 20061229, end: 20061230
  2. TAMIFLU [Suspect]
     Indication: PROPHYLAXIS
     Dosage: 45 MG TWICE A DAY PO
     Route: 048
     Dates: start: 20061229, end: 20061230

REACTIONS (1)
  - HALLUCINATION [None]
